FAERS Safety Report 4364874-5 (Version None)
Quarter: 2004Q2

REPORT INFORMATION
  Report Type: 
  Country: None (occurrence: None)
  Receive Date: 20040521
  Receipt Date: 20040429
  Transmission Date: 20050107
  Serious: Yes (Other)
  Sender: FDA-Public Use
  Company Number: USA031255513

PATIENT
  Age: 86 Year
  Sex: Female

DRUGS (12)
  1. FORTEO [Suspect]
     Indication: OSTEOPOROSIS
     Dosage: 20 UG/DAY
     Dates: start: 20030601
  2. TAMOXIFEN CITRATE [Concomitant]
  3. SINEMET [Concomitant]
  4. ZOLOFT [Concomitant]
  5. LODOSYN [Concomitant]
  6. ZANTAC [Concomitant]
  7. LIPITOR [Concomitant]
  8. VIOXX [Concomitant]
  9. PROTONIX [Concomitant]
  10. NOVALDEX (TAMOXIFEN CITRATE) [Concomitant]
  11. DEMADEX [Concomitant]
  12. MULTI-VITAMINS [Concomitant]

REACTIONS (3)
  - ANAEMIA [None]
  - MULTIPLE MYELOMA [None]
  - PRECANCEROUS SKIN LESION [None]
